FAERS Safety Report 4620645-3 (Version None)
Quarter: 2005Q1

REPORT INFORMATION
  Report Type: 
  Country: None (occurrence: None)
  Receive Date: 20050325
  Receipt Date: 20050307
  Transmission Date: 20050727
  Serious: Yes (Life-Threatening)
  Sender: FDA-Public Use
  Company Number: A01200501277

PATIENT
  Age: 32 Year
  Sex: Female

DRUGS (2)
  1. STILNOX                          (ZOLPIDEM) [Suspect]
     Indication: OVERDOSE
     Dosage: 7 DOSES DURING NIGHT
     Route: 048
  2. VALIUM [Suspect]

REACTIONS (3)
  - AMNESIA [None]
  - OVERDOSE [None]
  - ROAD TRAFFIC ACCIDENT [None]
